FAERS Safety Report 5372565-7 (Version None)
Quarter: 2007Q2

REPORT INFORMATION
  Report Type: 
  Country: None (occurrence: None)
  Receive Date: 20070627
  Receipt Date: 20070618
  Transmission Date: 20071010
  Serious: Yes (Other)
  Sender: FDA-Public Use
  Company Number: US-GENENTECH-243170

PATIENT
  Sex: Male
  Weight: 89.7 kg

DRUGS (3)
  1. EFALIZUMAB [Suspect]
     Indication: PSORIASIS
     Dosage: 0.08 MG, 1/WEEK
     Dates: start: 20060306
  2. TOPICAL STEROID (UNK INGREDIENTS) [Concomitant]
     Indication: PSORIASIS
     Dosage: UNK, BID
     Route: 061
     Dates: start: 20050509
  3. KETOCONAZOLE [Concomitant]
     Indication: PSORIASIS
     Dosage: UNK, QHS
     Dates: start: 20050509

REACTIONS (1)
  - APHASIA [None]
